FAERS Safety Report 25926674 (Version 1)
Quarter: 2025Q4

REPORT INFORMATION
  Report Type: Spontaneous
  Country: US (occurrence: None)
  Receive Date: 20251015
  Receipt Date: 20251015
  Transmission Date: 20260117
  Serious: Yes (Disabling, Other)
  Sender: FDA-CTU
  Company Number: None

PATIENT
  Age: 29 Year
  Sex: Male
  Weight: 70 kg

DRUGS (2)
  1. SERTRALINE [Suspect]
     Active Substance: SERTRALINE HYDROCHLORIDE
     Indication: Adjustment disorder with depressed mood
     Dates: start: 20211101, end: 20230619
  2. SERTRALINE [Suspect]
     Active Substance: SERTRALINE HYDROCHLORIDE
     Indication: Pulmonary embolism

REACTIONS (4)
  - Genital hypoaesthesia [None]
  - Libido decreased [None]
  - Anorgasmia [None]
  - Emotional disorder [None]

NARRATIVE: CASE EVENT DATE: 20230619
